FAERS Safety Report 21206460 (Version 8)
Quarter: 2023Q4

REPORT INFORMATION
  Report Type: Report from Study
  Country: JP (occurrence: JP)
  Receive Date: 20220812
  Receipt Date: 20231203
  Transmission Date: 20240109
  Serious: Yes (Hospitalization)
  Sender: FDA-Public Use
  Company Number: JP-ELI_LILLY_AND_COMPANY-JP202208001341

PATIENT
  Age: 73 Year
  Sex: Female
  Weight: 48 kg

DRUGS (4)
  1. RETEVMO [Suspect]
     Active Substance: SELPERCATINIB
     Indication: Non-small cell lung cancer stage IV
     Dosage: 160 MG, BID
     Route: 048
     Dates: start: 20220722, end: 20220731
  2. CODEINE PHOSPHATE [Suspect]
     Active Substance: CODEINE PHOSPHATE
     Indication: Respiratory symptom
     Dosage: 20 MG, BID
     Route: 048
  3. CODEINE PHOSPHATE [Suspect]
     Active Substance: CODEINE PHOSPHATE
     Dosage: 20 MG, DAILY (EACH MORNING)
     Route: 048
  4. LOSARTAN POTASSIUM [Concomitant]
     Active Substance: LOSARTAN POTASSIUM
     Indication: Hypertension

REACTIONS (3)
  - Erythema multiforme [Not Recovered/Not Resolved]
  - Decreased appetite [Recovered/Resolved]
  - Thrombocytopenia [Not Recovered/Not Resolved]

NARRATIVE: CASE EVENT DATE: 20220723
